FAERS Safety Report 5465155-9 (Version None)
Quarter: 2007Q3

REPORT INFORMATION
  Report Type: 
  Country: None (occurrence: None)
  Receive Date: 20070820
  Receipt Date: 20070522
  Transmission Date: 20080115
  Serious: No
  Sender: FDA-Public Use
  Company Number: WAES 0705USA04053

PATIENT
  Age: 89 Year
  Sex: Female

DRUGS (4)
  1. JANUVIA [Suspect]
     Indication: TYPE 2 DIABETES MELLITUS
     Dosage: 50 MG/DAILY/PO
     Route: 048
  2. COREG [Concomitant]
  3. NORVASC [Concomitant]
  4. TOPROL-XL [Concomitant]

REACTIONS (2)
  - NAUSEA [None]
  - VOMITING [None]
